FAERS Safety Report 8910007 (Version 7)
Quarter: 2014Q2

REPORT INFORMATION
  Report Type: Spontaneous
  Country: US (occurrence: US)
  Receive Date: 20121114
  Receipt Date: 20140616
  Transmission Date: 20141212
  Serious: Yes (Hospitalization)
  Sender: FDA-Public Use
  Company Number: US-009507513-1211USA003846

PATIENT
  Sex: Male
  Weight: 156.92 kg

DRUGS (8)
  1. PROPECIA [Suspect]
     Indication: ANDROGENETIC ALOPECIA
     Dosage: 1 MG, QD
     Route: 048
     Dates: start: 19990114, end: 20110701
  2. PROSCAR [Suspect]
     Indication: ALOPECIA
     Dosage: 5 MG, UNK
     Route: 048
     Dates: start: 20090512
  3. PROSCAR [Suspect]
     Dosage: 5 MG, UNK
     Route: 048
     Dates: start: 20090630
  4. PROSCAR [Suspect]
     Dosage: 5 MG, UNK
     Route: 048
     Dates: start: 20100712
  5. FINASTERIDE [Suspect]
     Indication: ALOPECIA
     Dosage: 1 MG, UNK
     Route: 048
     Dates: start: 20060512
  6. FINASTERIDE [Suspect]
     Dosage: 5 MG, UNK
     Dates: start: 20090711, end: 20090812
  7. INDERAL LA [Concomitant]
     Indication: HYPERTENSION
     Dosage: 120 MG, QD
     Dates: start: 1984, end: 2009
  8. XANAX [Concomitant]
     Indication: STRESS
     Dosage: 1 MG, QID PRN
     Dates: start: 1984

REACTIONS (17)
  - Anxiety [Unknown]
  - Gout [Unknown]
  - Hyperlipidaemia [Unknown]
  - Intentional product misuse [Unknown]
  - Haemorrhoid operation [Unknown]
  - Asthenia [Unknown]
  - Varicose vein [Unknown]
  - Coronary arterial stent insertion [Unknown]
  - Haemorrhoids [Unknown]
  - Sexual dysfunction [Not Recovered/Not Resolved]
  - Erectile dysfunction [Unknown]
  - Loss of libido [Unknown]
  - Urinary retention [Unknown]
  - Proctalgia [Unknown]
  - Cognitive disorder [Not Recovered/Not Resolved]
  - Peyronie^s disease [Unknown]
  - Penile pain [Unknown]
